FAERS Safety Report 6190699-4 (Version None)
Quarter: 2009Q2

REPORT INFORMATION
  Report Type: 
  Country: None (occurrence: None)
  Receive Date: 20090514
  Receipt Date: 20090502
  Transmission Date: 20091009
  Serious: Yes (Other)
  Sender: FDA-Public Use
  Company Number: US-PFIZER INC-2009208495

PATIENT
  Sex: Female
  Weight: 53.515 kg

DRUGS (9)
  1. LYRICA [Suspect]
     Indication: FIBROMYALGIA
     Dosage: 100 MG TWO OR THREE TIMES DAILY
  2. LYRICA [Suspect]
     Indication: FATIGUE
  3. HYZAAR [Suspect]
     Indication: HYPERTENSION
     Dosage: 100/25MG DAILY EVERYDAY
  4. EFFEXOR [Suspect]
     Dosage: 150 MG, 1X/DAY
  5. CELEBREX [Concomitant]
     Dosage: UNK
  6. IBUPROFEN [Concomitant]
     Dosage: UNK
  7. LEVOTHYROXINE [Concomitant]
     Dosage: 0.075 MG
  8. QUININE [Concomitant]
     Indication: MUSCLE SPASMS
     Dosage: UNK
  9. ACTONEL [Concomitant]
     Indication: OSTEOPOROSIS
     Dosage: UNK

REACTIONS (6)
  - DRUG INEFFECTIVE [None]
  - FOOT FRACTURE [None]
  - MEMORY IMPAIRMENT [None]
  - PAIN [None]
  - VISUAL IMPAIRMENT [None]
  - WEIGHT INCREASED [None]
